FAERS Safety Report 15348950 (Version 3)
Quarter: 2018Q4

REPORT INFORMATION
  Report Type: Spontaneous
  Country: US (occurrence: US)
  Receive Date: 20180904
  Receipt Date: 20181120
  Transmission Date: 20190204
  Serious: No
  Sender: FDA-Public Use
  Company Number: US-PFIZER INC-2018354842

PATIENT
  Age: 66 Year
  Sex: Female

DRUGS (1)
  1. IBRANCE [Suspect]
     Active Substance: PALBOCICLIB
     Indication: BREAST CANCER METASTATIC
     Dosage: UNK
     Dates: start: 2016

REACTIONS (3)
  - Weight increased [Unknown]
  - Neoplasm progression [Unknown]
  - Alopecia [Unknown]

NARRATIVE: CASE EVENT DATE: 2018
